FAERS Safety Report 15965229 (Version 8)
Quarter: 2020Q4

REPORT INFORMATION
  Report Type: Spontaneous
  Country: DE (occurrence: DE)
  Receive Date: 20190215
  Receipt Date: 20201231
  Transmission Date: 20210113
  Serious: Yes (Hospitalization, Other)
  Sender: FDA-Public Use
  Company Number: DE-AUROBINDO-AUR-APL-2019-007590

PATIENT
  Sex: Male
  Weight: 95 kg

DRUGS (20)
  1. CANDESARTAN. [Concomitant]
     Active Substance: CANDESARTAN
     Indication: PRODUCT USED FOR UNKNOWN INDICATION
     Dosage: 1 DOSAGE FORM, ONCE A DAY
     Route: 065
  2. VALSARTAN 1A PHARMA [Suspect]
     Active Substance: VALSARTAN
     Indication: HYPERTENSION
     Dosage: 320 MILLIGRAM, ONCE A DAY
     Route: 065
     Dates: start: 2015, end: 201807
  3. ASPIRINE PROTECT [Suspect]
     Active Substance: ASPIRIN
     Indication: ARTERIOSCLEROSIS CORONARY ARTERY
     Dosage: 100 OT, QOD (EVERY SECOND DAY)
     Route: 065
  4. VALSARTAN 1A PHARMA PLUS [Suspect]
     Active Substance: HYDROCHLOROTHIAZIDE\VALSARTAN
     Indication: HYPERTENSION
     Dosage: 1 DOSAGE FORM, ONCE A DAY, 1 DF, QD (PER DAY, IN THE MORNINGS)
     Route: 048
     Dates: start: 201505, end: 201808
  5. METOPROLOL SUCCINATE. [Concomitant]
     Active Substance: METOPROLOL SUCCINATE
     Dosage: 95 MILLIGRAM, ONCE A DAY
     Route: 048
  6. STEROFUNDIN [Concomitant]
     Active Substance: CALCIUM CHLORIDE\MAGNESIUM CHLORIDE\POTASSIUM CHLORIDE\SODIUM ACETATE\SODIUM CHLORIDE
     Indication: PRODUCT USED FOR UNKNOWN INDICATION
     Dosage: 100 MILLILITER
     Route: 065
     Dates: start: 20171020, end: 20171020
  7. VALSARTAN. [Suspect]
     Active Substance: VALSARTAN
     Indication: HYPERTENSION
     Dosage: 160 MILLIGRAM, ONCE A DAY
     Route: 065
     Dates: start: 201402, end: 201506
  8. VALSARTAN. [Suspect]
     Active Substance: VALSARTAN
     Dosage: 320 MILLIGRAM, ONCE A DAY
     Route: 065
     Dates: start: 201506
  9. PROVAS MAXX [Suspect]
     Active Substance: HYDROCHLOROTHIAZIDE\VALSARTAN
     Indication: HYPERTENSION
     Dosage: 1 DOSAGE FORM, ONCE A DAY, 1 DF, QD (320/25)
     Route: 048
  10. ASPIRINE PROTECT [Suspect]
     Active Substance: ASPIRIN
     Dosage: UNK, ONCE A DAY, 100 OT, QD
     Route: 048
     Dates: start: 201808
  11. HYDROCHLOROTHIAZIDE;VALSARTAN [Concomitant]
     Active Substance: HYDROCHLOROTHIAZIDE\VALSARTAN
     Dosage: 1 DOSAGE FORM, ONCE A DAY, 1 DF, QD (1-0-0)
     Route: 065
     Dates: start: 20171020, end: 20171024
  12. HAVRIX [Concomitant]
     Active Substance: HEPATITIS A VIRUS STRAIN HM175 ANTIGEN (FORMALDEHYDE INACTIVATED)
     Indication: PRODUCT USED FOR UNKNOWN INDICATION
     Dosage: 95 MILLIGRAM, ONCE A DAY
     Route: 048
     Dates: start: 20190916
  13. METOPROLOL. [Concomitant]
     Active Substance: METOPROLOL
     Indication: HYPERTENSION
     Dosage: 95 MILLIGRAM, ONCE A DAY
     Route: 048
  14. METOHEXAL SUCC [Concomitant]
     Active Substance: METOPROLOL SUCCINATE
     Indication: PRODUCT USED FOR UNKNOWN INDICATION
     Dosage: 95 MILLIGRAM, ONCE A DAY
     Route: 065
     Dates: start: 2014
  15. BELOC ZOK [Concomitant]
     Active Substance: METOPROLOL SUCCINATE
     Indication: PRODUCT USED FOR UNKNOWN INDICATION
     Dosage: 1 DOSAGE FORM, ONCE A DAY
     Route: 065
  16. PROVAS MAXX [Suspect]
     Active Substance: HYDROCHLOROTHIAZIDE\VALSARTAN
     Dosage: 1 DOSAGE FORM, ONCE A DAY, 1 DF, QD (160/25
     Route: 048
     Dates: start: 201512
  17. HYDROCHLOROTHIAZIDE;VALSARTAN [Concomitant]
     Active Substance: HYDROCHLOROTHIAZIDE\VALSARTAN
     Indication: PRODUCT USED FOR UNKNOWN INDICATION
     Dosage: 1 DOSAGE FORM, ONCE A DAY, 1 DF, QD (1-0-0)
     Route: 065
     Dates: start: 20171018, end: 20171018
  18. METOPROLOL SUCCINATE. [Concomitant]
     Active Substance: METOPROLOL SUCCINATE
     Indication: PRODUCT USED FOR UNKNOWN INDICATION
     Dosage: 1 DOSAGE FORM, ONCE A DAY
     Route: 065
     Dates: start: 20171018, end: 20171024
  19. HERZASS [Concomitant]
     Indication: PRODUCT USED FOR UNKNOWN INDICATION
     Dosage: 100 MILLIGRAM
     Route: 065
  20. TETANUS AND DIPHTHERIA TOXOIDS ADSORBED (VACCINE) [Concomitant]
     Active Substance: CLOSTRIDIUM TETANI\CLOSTRIDIUM TETANI TOXOID ANTIGEN (FORMALDEHYDE INACTIVATED)\CORYNEBACTERIUM DIPHTHERIAE\CORYNEBACTERIUM DIPHTHERIAE TOXOID ANTIGEN (FORMALDEHYDE INACTIVATED)
     Indication: PRODUCT USED FOR UNKNOWN INDICATION
     Dosage: UNK
     Route: 065
     Dates: start: 20190912

REACTIONS (57)
  - Cholangitis [Unknown]
  - Chills [Recovering/Resolving]
  - Peritoneal adhesions [Unknown]
  - Cardiac valve sclerosis [Unknown]
  - Arteriosclerosis [Unknown]
  - Pain in extremity [Unknown]
  - Nasopharyngitis [Unknown]
  - Pain [Unknown]
  - Blood creatine phosphokinase increased [Unknown]
  - Back pain [Unknown]
  - Hypoaesthesia [Unknown]
  - Jaundice [Recovering/Resolving]
  - Bladder hypertrophy [Recovering/Resolving]
  - Costovertebral angle tenderness [Unknown]
  - Left atrial enlargement [Unknown]
  - Pyrexia [Recovering/Resolving]
  - Inflammation [Recovering/Resolving]
  - Hiatus hernia [Unknown]
  - Duodenitis [Unknown]
  - Oxygen saturation increased [Unknown]
  - Gastritis erosive [Unknown]
  - Adhesion [Recovering/Resolving]
  - Haematocrit decreased [Unknown]
  - White blood cell count increased [Unknown]
  - Platelet count increased [Unknown]
  - Blood sodium decreased [Unknown]
  - Night sweats [Unknown]
  - Cholestasis [Recovering/Resolving]
  - Polyneuropathy [Unknown]
  - Aortic valve incompetence [Unknown]
  - Hypercholesterolaemia [Unknown]
  - Diastolic dysfunction [Unknown]
  - Cholelithiasis [Recovering/Resolving]
  - Helicobacter gastritis [Unknown]
  - Cholecystitis [Recovered/Resolved]
  - pH body fluid increased [Unknown]
  - Hypothyroidism [Unknown]
  - Spinal cord disorder [Unknown]
  - Hepatic steatosis [Unknown]
  - Productive cough [Unknown]
  - PCO2 decreased [Unknown]
  - Chromaturia [Recovering/Resolving]
  - Hydrocholecystis [Recovering/Resolving]
  - Hepatic cirrhosis [Unknown]
  - Hypokalaemia [Unknown]
  - Oedema [Unknown]
  - Cerebral arteriosclerosis [Unknown]
  - Hypertensive heart disease [Unknown]
  - Leukocytosis [Unknown]
  - Arteriosclerosis coronary artery [Unknown]
  - Gastrointestinal submucosal tumour [Recovered/Resolved]
  - Blood potassium decreased [Unknown]
  - Haemoglobin decreased [Unknown]
  - PO2 increased [Unknown]
  - Abdominal pain upper [Recovering/Resolving]
  - Obesity [Unknown]
  - Epistaxis [Unknown]

NARRATIVE: CASE EVENT DATE: 2017
